FAERS Safety Report 18702003 (Version 1)
Quarter: 2021Q1

REPORT INFORMATION
  Report Type: Spontaneous
  Country: AU (occurrence: AU)
  Receive Date: 20210105
  Receipt Date: 20210105
  Transmission Date: 20210419
  Serious: Yes (Other)
  Sender: FDA-Public Use
  Company Number: NVSC2020AU331174

PATIENT
  Age: 49 Year
  Sex: Female
  Weight: 80 kg

DRUGS (3)
  1. CARBOPLATIN. [Suspect]
     Active Substance: CARBOPLATIN
     Indication: ENDOMETRIAL CANCER METASTATIC
     Dosage: UNK
     Route: 042
     Dates: start: 20200723, end: 20201105
  2. PACLITAXEL. [Suspect]
     Active Substance: PACLITAXEL
     Indication: ENDOMETRIAL CANCER METASTATIC
     Dosage: 175 MG/M2, Q3W
     Route: 042
     Dates: start: 20200723, end: 20201105
  3. OXYCONTIN [Concomitant]
     Active Substance: OXYCODONE HYDROCHLORIDE
     Indication: ENDOMETRIAL CANCER METASTATIC
     Dosage: 10 MG
     Route: 048
     Dates: start: 202007

REACTIONS (4)
  - Postmenopausal haemorrhage [Unknown]
  - Pain [Unknown]
  - Malignant neoplasm progression [Not Recovered/Not Resolved]
  - Endometrial cancer metastatic [Not Recovered/Not Resolved]

NARRATIVE: CASE EVENT DATE: 20201125
